FAERS Safety Report 12936305 (Version 1)
Quarter: 2016Q4

REPORT INFORMATION
  Report Type: Spontaneous
  Country: US (occurrence: US)
  Receive Date: 20161112
  Receipt Date: 20161112
  Transmission Date: 20170207
  Serious: Yes (Other)
  Sender: FDA-Public Use
  Company Number: None

PATIENT
  Age: 14 Year
  Sex: Male
  Weight: 60.75 kg

DRUGS (2)
  1. KEPPRA [Suspect]
     Active Substance: LEVETIRACETAM
     Indication: SEIZURE
     Route: 048
     Dates: start: 20150330, end: 20150407
  2. DEPECAINE [Concomitant]

REACTIONS (4)
  - Seizure [None]
  - Abnormal behaviour [None]
  - Aggression [None]
  - Personality disorder [None]

NARRATIVE: CASE EVENT DATE: 20150403
